FAERS Safety Report 7444279-0 (Version None)
Quarter: 2011Q2

REPORT INFORMATION
  Report Type: 
  Country: None (occurrence: None)
  Receive Date: 20110429
  Receipt Date: 20110419
  Transmission Date: 20111010
  Serious: Yes (Other)
  Sender: FDA-Public Use
  Company Number: US-JNJFOC-20110410053

PATIENT
  Sex: Female
  Weight: 52.16 kg

DRUGS (5)
  1. ANTI DEPRESSANTS [Concomitant]
     Indication: DEPRESSION
     Route: 065
  2. FENTANYL-100 [Suspect]
     Indication: BACK PAIN
     Route: 062
  3. DURAGESIC [Suspect]
     Indication: BACK PAIN
     Route: 062
  4. VICODIN [Concomitant]
     Indication: PAIN
     Route: 065
  5. DURAGESIC [Suspect]
     Dosage: 50 UG/HR+75 UG/HR
     Route: 062

REACTIONS (2)
  - APPLICATION SITE PRURITUS [None]
  - SCOLIOSIS [None]
